FAERS Safety Report 17682430 (Version 1)
Quarter: 2020Q2

REPORT INFORMATION
  Report Type: Spontaneous
  Country: CA (occurrence: CA)
  Receive Date: 20200418
  Receipt Date: 20200418
  Transmission Date: 20200714
  Serious: Yes (Hospitalization)
  Sender: FDA-Public Use
  Company Number: CA-AUROBINDO-AUR-APL-2020-018292

PATIENT
  Sex: Male

DRUGS (8)
  1. SYMBICORT [Concomitant]
     Active Substance: BUDESONIDE\FORMOTEROL FUMARATE DIHYDRATE
     Indication: ASTHMA
     Dosage: 2.0 DOSAGE FORM, TWO TIMES A DAY
  2. ALFUZOSIN [Suspect]
     Active Substance: ALFUZOSIN
     Indication: PROSTATIC DISORDER
     Dosage: 10.0 MILLIGRAM, ONCE A DAY
     Route: 048
  3. ALFUZOSIN HYDROCHLORIDE. [Concomitant]
     Active Substance: ALFUZOSIN HYDROCHLORIDE
     Indication: PRODUCT USED FOR UNKNOWN INDICATION
     Dosage: 10.0 MILLIGRAM, ONCE A DAY
     Route: 048
  4. BREO ELLIPTA [Concomitant]
     Active Substance: FLUTICASONE FUROATE\VILANTEROL TRIFENATATE
     Indication: ASTHMA
     Dosage: 1.0 DOSAGE FORM, ONCE A DAY
  5. VENTOLIN [Concomitant]
     Active Substance: ALBUTEROL SULFATE
     Indication: ASTHMA
     Dosage: 2.0 DOSAGE FORM
  6. MONTELUKAST [Suspect]
     Active Substance: MONTELUKAST SODIUM
     Indication: ASTHMA
     Dosage: 10.0 MILLIGRAM, ONCE A DAY
     Route: 048
  7. PULMICORT TURBUHALER [Concomitant]
     Active Substance: BUDESONIDE
     Indication: SINUSITIS
     Dosage: 0.5 MILLIGRAM
     Route: 045
  8. SPIRIVA [Concomitant]
     Active Substance: TIOTROPIUM BROMIDE MONOHYDRATE
     Indication: ASTHMA
     Dosage: 2.0 DOSAGE FORM, ONCE A DAY

REACTIONS (3)
  - Asthma [Not Recovered/Not Resolved]
  - Dyspnoea [Not Recovered/Not Resolved]
  - Drug resistance [Not Recovered/Not Resolved]
